FAERS Safety Report 17516109 (Version 1)
Quarter: 2020Q1

REPORT INFORMATION
  Report Type: Spontaneous
  Country: US (occurrence: US)
  Receive Date: 20200309
  Receipt Date: 20200309
  Transmission Date: 20200409
  Serious: No
  Sender: FDA-Public Use
  Company Number: US-TARO-2019TAR00298

PATIENT
  Sex: Female

DRUGS (1)
  1. TERCONAZOLE VAGINAL CREAM 0.4% [Suspect]
     Active Substance: TERCONAZOLE
     Indication: INFECTION

REACTIONS (3)
  - Pain [Not Recovered/Not Resolved]
  - Product package associated injury [Not Recovered/Not Resolved]
  - Product quality issue [Not Recovered/Not Resolved]
